FAERS Safety Report 12450370 (Version 4)
Quarter: 2016Q3

REPORT INFORMATION
  Report Type: Report from Study
  Country: BG (occurrence: BG)
  Receive Date: 20160609
  Receipt Date: 20160802
  Transmission Date: 20161109
  Serious: Yes (Hospitalization, Disabling, Other)
  Sender: FDA-Public Use
  Company Number: BG-AMGEN-BGRSL2016072362

PATIENT
  Age: 63 Year
  Sex: Male
  Weight: 70 kg

DRUGS (1)
  1. VECTIBIX [Suspect]
     Active Substance: PANITUMUMAB
     Indication: COLORECTAL CANCER METASTATIC
     Dosage: 350 MG, TWO TIMES PER MONTH
     Route: 042
     Dates: end: 20160608

REACTIONS (6)
  - Rash [Recovered/Resolved]
  - Insomnia [Unknown]
  - Metastases to liver [Unknown]
  - Asthenia [Unknown]
  - Formication [Not Recovered/Not Resolved]
  - Anaemia [Recovering/Resolving]

NARRATIVE: CASE EVENT DATE: 201606
